FAERS Safety Report 5143147-7 (Version None)
Quarter: 2006Q4

REPORT INFORMATION
  Report Type: 
  Country: None (occurrence: None)
  Receive Date: 20061103
  Receipt Date: 20061025
  Transmission Date: 20070319
  Serious: Yes (Hospitalization)
  Sender: FDA-Public Use
  Company Number: FR-AVENTIS-200613763FR

PATIENT
  Age: 87 Year
  Sex: Male

DRUGS (4)
  1. LASILIX                            /00032601/ [Suspect]
     Route: 048
  2. MODOPAR [Concomitant]
     Route: 048
  3. ODRIK [Concomitant]
     Route: 048
  4. CARDENSIEL [Concomitant]
     Route: 048

REACTIONS (2)
  - AMMONIA INCREASED [None]
  - HEPATIC ENCEPHALOPATHY [None]
